FAERS Safety Report 6518200-3 (Version None)
Quarter: 2009Q4

REPORT INFORMATION
  Report Type: 
  Country: None (occurrence: None)
  Receive Date: 20091224
  Receipt Date: 20091216
  Transmission Date: 20100525
  Serious: Yes (Life-Threatening, Hospitalization)
  Sender: FDA-Public Use
  Company Number: US-CELGENEUS-163-C5013-09111755

PATIENT
  Sex: Male
  Weight: 85.034 kg

DRUGS (32)
  1. CC-5013\PLACEBO [Suspect]
     Indication: PROSTATE CANCER
     Route: 048
     Dates: start: 20091117, end: 20091120
  2. CC-5013\PLACEBO [Suspect]
     Route: 048
     Dates: start: 20091207, end: 20091216
  3. DOCETAXEL [Suspect]
     Indication: PROSTATE CANCER
     Route: 051
     Dates: start: 20091116
  4. PREDNISONE TAB [Suspect]
     Indication: PROSTATE CANCER
     Route: 048
     Dates: start: 20091116, end: 20091120
  5. PREDNISONE TAB [Suspect]
     Route: 065
     Dates: start: 20091123
  6. NAPROXEN [Concomitant]
     Indication: PAIN
     Route: 048
     Dates: start: 20091001, end: 20091120
  7. DEXAMETHASONE TAB [Concomitant]
     Indication: CHEMOTHERAPY
     Route: 048
     Dates: start: 20091115, end: 20091117
  8. DEXAMETHASONE TAB [Concomitant]
     Route: 051
     Dates: start: 20091116, end: 20091116
  9. LEVOFLOXACIN [Concomitant]
     Indication: BACTERIAL INFECTION
     Route: 048
     Dates: start: 20091119, end: 20091120
  10. LEVOFLOXACIN [Concomitant]
     Indication: URINARY TRACT INFECTION
     Route: 051
     Dates: start: 20091121, end: 20091123
  11. POLYETHYLENE GLYCOL 3350 [Concomitant]
     Indication: CONSTIPATION
     Route: 048
     Dates: start: 20091119, end: 20091120
  12. ZOFRAN [Concomitant]
     Route: 051
     Dates: start: 20091119, end: 20091119
  13. ZOFRAN [Concomitant]
     Route: 048
     Dates: start: 20091123
  14. MORPHINE SULFATE [Concomitant]
     Indication: PAIN
     Route: 051
     Dates: start: 20091119, end: 20091119
  15. REGLAN [Concomitant]
     Indication: CONSTIPATION
     Route: 048
     Dates: start: 20091119, end: 20091119
  16. PALONOSETRON [Concomitant]
     Route: 051
     Dates: start: 20091116, end: 20091116
  17. PALONOSETRON [Concomitant]
  18. DIPHENHYDRAMINE HCL [Concomitant]
     Indication: PROPHYLAXIS
     Route: 051
     Dates: start: 20091116, end: 20091116
  19. CELEXA [Concomitant]
     Indication: DEPRESSION
     Route: 048
  20. OS-CAL 500 PLUS D [Concomitant]
     Route: 048
     Dates: end: 20091120
  21. OS-CAL 500 PLUS D [Concomitant]
     Route: 048
     Dates: start: 20091123
  22. MESALAZINE [Concomitant]
     Route: 054
     Dates: end: 20091120
  23. AMBIEN [Concomitant]
     Indication: INSOMNIA
     Route: 048
     Dates: start: 20091120
  24. ROCEPHIN [Concomitant]
     Route: 051
     Dates: start: 20091120, end: 20091121
  25. SODIUM CHLORIDE [Concomitant]
     Indication: DRUG USE FOR UNKNOWN INDICATION
     Route: 040
     Dates: start: 20091119, end: 20091119
  26. POTASSIUM CHLORIDE [Concomitant]
     Indication: DRUG USE FOR UNKNOWN INDICATION
     Route: 048
     Dates: start: 20091119
  27. DEMEROL [Concomitant]
     Indication: DRUG USE FOR UNKNOWN INDICATION
     Route: 051
     Dates: start: 20091119
  28. ZOLEDRONIC ACID [Concomitant]
     Route: 051
     Dates: start: 20091116, end: 20091116
  29. AMPICILLIN [Concomitant]
     Indication: INFECTION
     Route: 048
     Dates: start: 20091123, end: 20091130
  30. DARVOCET-N 100 [Concomitant]
     Indication: PAIN
     Route: 048
     Dates: start: 20091120, end: 20091123
  31. TAXOTERE [Concomitant]
     Indication: DRUG USE FOR UNKNOWN INDICATION
     Route: 065
  32. ROWASA [Concomitant]
     Indication: DRUG USE FOR UNKNOWN INDICATION
     Route: 065

REACTIONS (5)
  - ABDOMINAL PAIN [None]
  - HYPERBILIRUBINAEMIA [None]
  - NEUTROPENIA [None]
  - NEUTROPENIC INFECTION [None]
  - PYREXIA [None]
